FAERS Safety Report 23245184 (Version 1)
Quarter: 2023Q4

REPORT INFORMATION
  Report Type: Spontaneous
  Country: US (occurrence: US)
  Receive Date: 20231130
  Receipt Date: 20231130
  Transmission Date: 20240110
  Serious: No
  Sender: FDA-Public Use
  Company Number: US-IBSA PHARMA INC.-2023IBS000727

PATIENT

DRUGS (1)
  1. TIROSINT [Suspect]
     Active Substance: LEVOTHYROXINE SODIUM
     Indication: Thyroid hormone replacement therapy
     Dosage: 112 MICROGRAM, QD
     Route: 048
     Dates: start: 20230101

REACTIONS (13)
  - Musculoskeletal discomfort [Unknown]
  - Pain in extremity [Unknown]
  - Bone disorder [Unknown]
  - Brain fog [Unknown]
  - Hormone level abnormal [Unknown]
  - Breast tenderness [Unknown]
  - Blood test abnormal [Unknown]
  - Feeling abnormal [Unknown]
  - Muscular weakness [Unknown]
  - Palpitations [Unknown]
  - Alopecia [Unknown]
  - Anxiety [Unknown]
  - Product dose omission issue [Unknown]

NARRATIVE: CASE EVENT DATE: 20230101
